FAERS Safety Report 4533686-1 (Version None)
Quarter: 2004Q4

REPORT INFORMATION
  Report Type: 
  Country: None (occurrence: None)
  Receive Date: 20041221
  Receipt Date: 20041208
  Transmission Date: 20050328
  Serious: Yes (Death, Hospitalization)
  Sender: FDA-Public Use
  Company Number: JPKYO-S-20040053

PATIENT
  Age: 75 Year
  Sex: Male

DRUGS (9)
  1. NAVELBINE [Suspect]
     Indication: NON-SMALL CELL LUNG CANCER
     Route: 042
     Dates: start: 20040927, end: 20040927
  2. URINORM [Concomitant]
     Dates: end: 20041031
  3. NIVADIL [Concomitant]
     Dates: end: 20041031
  4. LORAZEPAM [Concomitant]
     Dates: end: 20041031
  5. SELBEX [Concomitant]
     Dates: end: 20041031
  6. UNSPECIFIED MEDICATION [Concomitant]
     Dates: end: 20041031
  7. HOCHU-EKKI-TO [Concomitant]
     Dates: end: 20041031
  8. BEZATOL SR [Concomitant]
     Dates: end: 20041031
  9. NAIXAN [Concomitant]
     Dates: end: 20041031

REACTIONS (8)
  - BLOOD LACTATE DEHYDROGENASE INCREASED [None]
  - BLOOD PRESSURE DECREASED [None]
  - C-REACTIVE PROTEIN INCREASED [None]
  - DYSPNOEA [None]
  - HYPOXIA [None]
  - INTERSTITIAL LUNG DISEASE [None]
  - PYREXIA [None]
  - RESPIRATORY FAILURE [None]
